FAERS Safety Report 12178129 (Version 2)
Quarter: 2016Q2

REPORT INFORMATION
  Report Type: Spontaneous
  Country: JP (occurrence: JP)
  Receive Date: 20160315
  Receipt Date: 20160404
  Transmission Date: 20160815
  Serious: Yes (Other)
  Sender: FDA-Public Use
  Company Number: JP-ROCHE-1726124

PATIENT
  Age: 56 Year
  Sex: Male
  Weight: 51 kg

DRUGS (8)
  1. ELNEOPA [Concomitant]
     Active Substance: UNSPECIFIED INGREDIENT
     Dosage: DOSAGE IS UNCERTAIN.
     Route: 065
     Dates: start: 20151229, end: 20160215
  2. INTRALIPOS [Concomitant]
     Active Substance: SOYBEAN OIL
     Dosage: THE FRACTIONATION DOSE FREQUENCY IS UNCERTAIN. ?THE NUMBER OF DOSES IS UNCERTAIN.
     Route: 065
     Dates: start: 20160109, end: 20160215
  3. LOXOMARIN [Concomitant]
     Active Substance: LOXOPROFEN
     Dosage: DOSAGE IS UNCERTAIN.
     Route: 048
     Dates: start: 20151222, end: 20160215
  4. HEPARINOID [Concomitant]
     Active Substance: CHONDROITIN SULFATE (BOVINE)
     Dosage: THE FRACTIONATION DOSE FREQUENCY IS UNCERTAIN. ?DOSE INTERVAL UNCERTAINTY
     Route: 003
     Dates: start: 20160121, end: 20160121
  5. INTRALIPOS [Concomitant]
     Active Substance: SOYBEAN OIL
     Dosage: THE FRACTIONATION DOSE FREQUENCY IS UNCERTAIN. ?THE NUMBER OF DOSES IS UNCERTAIN.
     Route: 065
     Dates: start: 20151226, end: 20151229
  6. XELODA [Suspect]
     Active Substance: CAPECITABINE
     Indication: MALIGNANT ANORECTAL NEOPLASM
     Route: 048
     Dates: start: 20160106, end: 20160212
  7. REBAMIPIDE [Concomitant]
     Active Substance: REBAMIPIDE
     Dosage: DOSAGE IS UNCERTAIN.
     Route: 048
     Dates: start: 20151222, end: 20160215
  8. AZUNOL [Concomitant]
     Active Substance: SODIUM GUALENATE
     Dosage: DOSAGE IS UNCERTAIN.
     Route: 003
     Dates: start: 20160201, end: 20160201

REACTIONS (1)
  - Leukoencephalopathy [Unknown]

NARRATIVE: CASE EVENT DATE: 20160215
